FAERS Safety Report 24669563 (Version 1)
Quarter: 2024Q4

REPORT INFORMATION
  Report Type: Spontaneous
  Country: US (occurrence: US)
  Receive Date: 20241127
  Receipt Date: 20241127
  Transmission Date: 20250115
  Serious: No
  Sender: NOVARTIS
  Company Number: US-002147023-NVSC2024US225790

PATIENT

DRUGS (1)
  1. KESIMPTA [Suspect]
     Active Substance: OFATUMUMAB
     Indication: Product used for unknown indication
     Dosage: UNK
     Route: 065

REACTIONS (12)
  - Injection site pain [Unknown]
  - Pruritus [Unknown]
  - Dandruff [Unknown]
  - Seborrhoeic dermatitis [Unknown]
  - Alopecia [Unknown]
  - Hypersensitivity [Unknown]
  - Fatigue [Unknown]
  - Illness [Unknown]
  - Nasopharyngitis [Unknown]
  - Ear infection [Unknown]
  - Disease recurrence [Unknown]
  - Headache [Unknown]
